FAERS Safety Report 8536165-X (Version None)
Quarter: 2012Q3

REPORT INFORMATION
  Report Type: 
  Country: None (occurrence: None)
  Receive Date: 20120725
  Receipt Date: 20120716
  Transmission Date: 20120928
  Serious: No
  Sender: FDA-Public Use
  Company Number: US-ELI_LILLY_AND_COMPANY-US201205004255

PATIENT
  Sex: Female

DRUGS (3)
  1. FORTEO [Suspect]
     Indication: OSTEOPOROSIS
     Dosage: 20 UG, QD
  2. SODIUM BICARBONATE [Concomitant]
     Indication: RENAL FAILURE
     Dosage: 2600 MG, QID
  3. FORTEO [Suspect]
     Dosage: 20 UG, QD

REACTIONS (5)
  - HAEMOGLOBIN DECREASED [None]
  - ARTHRALGIA [None]
  - PAIN IN EXTREMITY [None]
  - BLOOD CREATININE DECREASED [None]
  - BLOOD IRON DECREASED [None]
